FAERS Safety Report 10013865 (Version 1)
Quarter: 2014Q1

REPORT INFORMATION
  Report Type: Spontaneous
  Country: GB (occurrence: GB)
  Receive Date: 20140316
  Receipt Date: 20140316
  Transmission Date: 20141002
  Serious: Yes (Congenital Anomaly)
  Sender: FDA-Public Use
  Company Number: GB-MYLANLABS-2014S1004897

PATIENT
  Sex: Female

DRUGS (1)
  1. CITALOPRAM [Suspect]
     Indication: DEPRESSION

REACTIONS (8)
  - Foetal exposure during pregnancy [Unknown]
  - Laryngeal stenosis [Unknown]
  - Cardiomegaly [Unknown]
  - Respiratory tract infection [Unknown]
  - Pneumonia [Unknown]
  - Croup infectious [Unknown]
  - Stridor [Unknown]
  - Wheezing [Unknown]
